FAERS Safety Report 8989794 (Version 2)
Quarter: 2013Q1

REPORT INFORMATION
  Report Type: Spontaneous
  Country: US (occurrence: US)
  Receive Date: 20121228
  Receipt Date: 20130109
  Transmission Date: 20140127
  Serious: Yes (Death)
  Sender: FDA-Public Use
  Company Number: US-GILEAD-2012-0067002

PATIENT
  Sex: Female

DRUGS (8)
  1. LETAIRIS [Suspect]
     Indication: PULMONARY ARTERIAL HYPERTENSION
     Dosage: 5 MG, QD
     Route: 048
     Dates: start: 20121107, end: 20121210
  2. ASPIRIN [Concomitant]
  3. PRILOSEC                           /00661201/ [Concomitant]
  4. CITRUCEL [Concomitant]
  5. XOPENEX HFA [Concomitant]
  6. LEVOTHYROXINE [Concomitant]
  7. WARFARIN [Concomitant]
  8. TOPROL [Concomitant]

REACTIONS (1)
  - Death [Fatal]
